FAERS Safety Report 12145895 (Version 1)
Quarter: 2016Q1

REPORT INFORMATION
  Report Type: Spontaneous
  Country: US (occurrence: US)
  Receive Date: 20160304
  Receipt Date: 20160304
  Transmission Date: 20160526
  Serious: Yes (Life-Threatening, Other)
  Sender: FDA-Public Use
  Company Number: US-MEDTRONIC-1048679

PATIENT
  Age: 55 Year
  Sex: Male

DRUGS (2)
  1. BACLOFEN UNKNOWN (145 MCG/ML) [Suspect]
     Active Substance: BACLOFEN
     Indication: PAIN
     Route: 037
  2. DILAUDID [Suspect]
     Active Substance: HYDROMORPHONE HYDROCHLORIDE
     Route: 037

REACTIONS (7)
  - Pain [Unknown]
  - Cerebrovascular accident [Unknown]
  - Terminal state [Unknown]
  - Hepatic cancer [Unknown]
  - Implant site fibrosis [Unknown]
  - Incorrect drug administration rate [None]
  - Myocardial infarction [Unknown]
